FAERS Safety Report 7877688-6 (Version None)
Quarter: 2011Q4

REPORT INFORMATION
  Report Type: 
  Country: None (occurrence: None)
  Receive Date: 20111031
  Receipt Date: 20111031
  Transmission Date: 20120403
  Serious: Yes (Other)
  Sender: FDA-Public Use
  Company Number: None

PATIENT
  Sex: Female
  Weight: 68.946 kg

DRUGS (1)
  1. LEVOFLOXACIN [Suspect]
     Indication: ANTIBIOTIC THERAPY
     Dosage: 500 MG
     Route: 048
     Dates: start: 20111021, end: 20111026

REACTIONS (13)
  - ABDOMINAL PAIN [None]
  - SYNCOPE [None]
  - PRURITUS [None]
  - VOMITING [None]
  - NAUSEA [None]
  - NERVOUSNESS [None]
  - DIZZINESS [None]
  - TREMOR [None]
  - FAECES PALE [None]
  - PYREXIA [None]
  - ASTHENIA [None]
  - CONFUSIONAL STATE [None]
  - ABDOMINAL PAIN UPPER [None]
